FAERS Safety Report 9200323 (Version 1)
Quarter: 2013Q1

REPORT INFORMATION
  Report Type: Spontaneous
  Country: US (occurrence: US)
  Receive Date: 20130329
  Receipt Date: 20130329
  Transmission Date: 20140127
  Serious: No
  Sender: FDA-Public Use
  Company Number: US-GLAXOSMITHKLINE-A0972076A

PATIENT
  Age: 58 Year
  Sex: Female
  Weight: 65.83 kg

DRUGS (16)
  1. BENLYSTA [Suspect]
     Indication: SYSTEMIC LUPUS ERYTHEMATOSUS
     Route: 042
     Dates: start: 201110
  2. ASPIRIN [Concomitant]
  3. LOPRESSOR [Concomitant]
  4. PRILOSEC [Concomitant]
  5. TRAMADOL [Concomitant]
     Indication: PAIN
  6. TRAZODONE [Concomitant]
  7. EFFEXOR XR [Concomitant]
     Indication: ANXIETY
  8. EFFEXOR XR [Concomitant]
     Indication: DEPRESSION
  9. CRESTOR [Concomitant]
  10. ZOMIG [Concomitant]
     Indication: MIGRAINE
  11. PLAQUENIL [Concomitant]
  12. ARAVA [Concomitant]
  13. TRIAMTERENE [Concomitant]
  14. MAXIDE [Concomitant]
  15. AMITRIPTYLINE [Concomitant]
  16. DIAZEPAM [Concomitant]

REACTIONS (8)
  - Weight decreased [Not Recovered/Not Resolved]
  - Migraine [Recovered/Resolved]
  - Anxiety [Recovered/Resolved]
  - Insomnia [Recovered/Resolved]
  - Feeling hot [Unknown]
  - Chest discomfort [Unknown]
  - Palpitations [Unknown]
  - Respiratory tract congestion [Unknown]
